FAERS Safety Report 17666119 (Version 5)
Quarter: 2020Q4

REPORT INFORMATION
  Report Type: Report from Study
  Country: US (occurrence: US)
  Receive Date: 20200414
  Receipt Date: 20201209
  Transmission Date: 20210113
  Serious: No
  Sender: FDA-Public Use
  Company Number: NVSC2020US099550

PATIENT
  Sex: Male

DRUGS (2)
  1. COSENTYX [Suspect]
     Active Substance: SECUKINUMAB
     Dosage: 300 MG, Q4W
     Route: 058
  2. COSENTYX [Suspect]
     Active Substance: SECUKINUMAB
     Indication: PSORIASIS
     Dosage: 300 MG,  DRUG HAD BEEN INTERUPPTED FOR 2 WEEKS.
     Route: 058

REACTIONS (3)
  - Illness [Recovering/Resolving]
  - Ear infection [Recovering/Resolving]
  - Pain [Recovering/Resolving]
